FAERS Safety Report 13124588 (Version 3)
Quarter: 2017Q1

REPORT INFORMATION
  Report Type: Spontaneous
  Country: US (occurrence: US)
  Receive Date: 20170118
  Receipt Date: 20170330
  Transmission Date: 20170428
  Serious: Yes (Death, Life-Threatening, Hospitalization, Other)
  Sender: FDA-Public Use
  Company Number: US-DRREDDYS-USA/USA/17/0086402

PATIENT
  Age: 60 Year
  Sex: Male

DRUGS (2)
  1. CYCLOPHOSPHAMIDE. [Suspect]
     Active Substance: CYCLOPHOSPHAMIDE
     Indication: BREAST CANCER
     Route: 065
  2. DOCETAXEL. [Suspect]
     Active Substance: DOCETAXEL
     Indication: BREAST CANCER
     Route: 065

REACTIONS (18)
  - Mucosal inflammation [Unknown]
  - Aspartate aminotransferase increased [Unknown]
  - Renal failure [Fatal]
  - Generalised oedema [Unknown]
  - Metabolic acidosis [Fatal]
  - Thrombocytopenia [Unknown]
  - Blood alkaline phosphatase increased [Unknown]
  - Stevens-Johnson syndrome [Fatal]
  - Hypotension [Unknown]
  - Anaemia [Unknown]
  - Pulmonary alveolar haemorrhage [Fatal]
  - Multiple organ dysfunction syndrome [Fatal]
  - Respiratory failure [Fatal]
  - Pneumocystis jirovecii pneumonia [Fatal]
  - Alanine aminotransferase increased [Unknown]
  - Disseminated intravascular coagulation [Fatal]
  - International normalised ratio increased [Unknown]
  - Haemoptysis [Unknown]
